FAERS Safety Report 4368462-6 (Version None)
Quarter: 2004Q2

REPORT INFORMATION
  Report Type: 
  Country: None (occurrence: None)
  Receive Date: 20040528
  Receipt Date: 20040511
  Transmission Date: 20050107
  Serious: Yes (Other)
  Sender: FDA-Public Use
  Company Number: 2004-UK-004521UK(1)

PATIENT
  Age: 72 Year
  Sex: Male

DRUGS (12)
  1. TIOTROPIUM (00015/0190/A) TIOTROPIUM BROMIDE) (KAI) [Suspect]
     Indication: ASTHMA
     Dosage: 18 MCG, IH
     Route: 055
     Dates: start: 20040201
  2. CLOPIDOGREL (CLOPIDOGREL) [Concomitant]
  3. BEZAFIBRATE (BEZAFIBRATE) [Concomitant]
  4. BISOPROLOL FUMARATE [Concomitant]
  5. FUROSEMIDE [Concomitant]
  6. GLYCERYL MONONITRATE [Concomitant]
  7. LACTULOSE [Concomitant]
  8. QUININE SULPHATE (QUININE SULFATE) [Concomitant]
  9. RAMIPRIL [Concomitant]
  10. WARFARIN SODIUM [Concomitant]
  11. SALBUTAMOL (SALBUTAMOL) [Concomitant]
  12. SERETIDE [Concomitant]

REACTIONS (3)
  - DYSPNOEA [None]
  - VIRAL INFECTION [None]
  - VIRAL RASH [None]
